FAERS Safety Report 25506800 (Version 1)
Quarter: 2025Q3

REPORT INFORMATION
  Report Type: Spontaneous
  Country: US (occurrence: US)
  Receive Date: 20250702
  Receipt Date: 20250702
  Transmission Date: 20251020
  Serious: No
  Sender: RADIUS PHARM
  Company Number: US-RADIUS HEALTH INC.-2025US001231

PATIENT
  Sex: Female

DRUGS (1)
  1. TYMLOS [Suspect]
     Active Substance: ABALOPARATIDE
     Indication: Product used for unknown indication
     Route: 065
     Dates: start: 202412

REACTIONS (17)
  - Irritable bowel syndrome [Unknown]
  - Cough [Not Recovered/Not Resolved]
  - Chromaturia [Unknown]
  - Weight increased [Not Recovered/Not Resolved]
  - Protein urine present [Unknown]
  - Gingival swelling [Unknown]
  - Toothache [Unknown]
  - Laboratory test abnormal [Not Recovered/Not Resolved]
  - Pollakiuria [Unknown]
  - White blood cells urine [Unknown]
  - Dizziness [Recovered/Resolved]
  - Fatigue [Recovered/Resolved]
  - Muscle spasms [Recovered/Resolved]
  - Palpitations [Recovered/Resolved]
  - Abdominal distension [Not Recovered/Not Resolved]
  - Abdominal pain [Not Recovered/Not Resolved]
  - Bone pain [Not Recovered/Not Resolved]

NARRATIVE: CASE EVENT DATE: 20241201
